FAERS Safety Report 7714603-X (Version None)
Quarter: 2011Q3

REPORT INFORMATION
  Report Type: 
  Country: None (occurrence: None)
  Receive Date: 20110829
  Receipt Date: 20110825
  Transmission Date: 20111222
  Serious: No
  Sender: FDA-Public Use
  Company Number: US-PFIZER INC-2011198179

PATIENT
  Sex: Male
  Weight: 61.224 kg

DRUGS (3)
  1. ALPRAZOLAM [Suspect]
     Indication: ANXIETY DISORDER
     Dosage: 0.5 MG, 3X/DAY
     Route: 048
     Dates: start: 20110801
  2. DOXEPIN [Concomitant]
     Indication: DEPRESSION
     Dosage: 10 MG, 1X/DAY AT NIGHT
  3. XANAX [Suspect]
     Dosage: UNK

REACTIONS (3)
  - HEADACHE [None]
  - DRUG INEFFECTIVE [None]
  - DRY MOUTH [None]
